FAERS Safety Report 6128342-2 (Version None)
Quarter: 2009Q1

REPORT INFORMATION
  Report Type: 
  Country: None (occurrence: None)
  Receive Date: 20090323
  Receipt Date: 20090318
  Transmission Date: 20090719
  Serious: Yes (Disabling)
  Sender: FDA-Public Use
  Company Number: B0562904A

PATIENT
  Age: 61 Year
  Sex: Male
  Weight: 56 kg

DRUGS (6)
  1. ZOVIRAX [Suspect]
     Indication: HERPES OPHTHALMIC
     Dosage: 1500MG TWICE PER DAY
     Route: 042
     Dates: start: 20090223, end: 20090226
  2. ZOVIRAX [Suspect]
     Dosage: 600MG TWICE PER DAY
     Route: 042
     Dates: start: 20090227
  3. PREDONINE [Concomitant]
     Route: 065
     Dates: start: 20090223
  4. GASTER [Concomitant]
     Dosage: 40MG PER DAY
     Route: 065
     Dates: start: 20090223
  5. ASPIRIN [Concomitant]
     Route: 048
     Dates: start: 20090223
  6. PERSANTINE [Concomitant]
     Dosage: 100MG PER DAY
     Route: 065
     Dates: start: 20090223

REACTIONS (3)
  - BLOOD CREATININE INCREASED [None]
  - GENERALISED OEDEMA [None]
  - RENAL FAILURE ACUTE [None]
